FAERS Safety Report 7782915-X (Version None)
Quarter: 2011Q3

REPORT INFORMATION
  Report Type: 
  Country: None (occurrence: None)
  Receive Date: 20110928
  Receipt Date: 20110923
  Transmission Date: 20111222
  Serious: Yes (Other)
  Sender: FDA-Public Use
  Company Number: US-SHIRE-ALL1-2011-03597

PATIENT
  Sex: Female
  Weight: 86.168 kg

DRUGS (5)
  1. VYVANSE [Suspect]
     Indication: ATTENTION DEFICIT/HYPERACTIVITY DISORDER
     Dosage: 70 MG, 1X/DAY:QD
     Route: 048
     Dates: start: 20080101, end: 20090101
  2. VYVANSE [Suspect]
     Dosage: UNK UNK(OCCASIONALLY TAKES HALF OF A 70 MG CAPSULE), 1X/DAY:QD
     Route: 048
     Dates: start: 20100101
  3. VYVANSE [Suspect]
     Dosage: UNK UNK (30 OR 40 MG), 1X/DAY:QD
     Route: 048
     Dates: start: 20100101, end: 20100101
  4. VYVANSE [Suspect]
     Dosage: 70 MG, 1X/DAY:QD
     Route: 048
     Dates: start: 20100101
  5. 6 UNSPECIFIED MEDICATIONS [Concomitant]
     Indication: PRODUCT USED FOR UNKNOWN INDICATION
     Dosage: UNK, UNKNOWN
     Route: 065

REACTIONS (4)
  - MULTIPLE SCLEROSIS [None]
  - INCORRECT DOSE ADMINISTERED [None]
  - DRUG INEFFECTIVE [None]
  - DISTURBANCE IN ATTENTION [None]
